FAERS Safety Report 10870474 (Version 2)
Quarter: 2015Q1

REPORT INFORMATION
  Report Type: Spontaneous
  Country: GB (occurrence: GB)
  Receive Date: 20150226
  Receipt Date: 20150326
  Transmission Date: 20150721
  Serious: Yes (Death, Other)
  Sender: FDA-Public Use
  Company Number: GB-NOVOPROD-439757

PATIENT
  Age: 72 Year
  Sex: Male

DRUGS (2)
  1. NORDITROPIN [Suspect]
     Active Substance: SOMATROPIN
     Indication: HYPOGLYCAEMIA
     Dosage: 0.6 MG, QD
     Route: 058
     Dates: start: 20130520
  2. NORDITROPIN [Suspect]
     Active Substance: SOMATROPIN
     Indication: OFF LABEL USE

REACTIONS (6)
  - Incontinence [Unknown]
  - Dyspnoea [Unknown]
  - Death [Fatal]
  - General physical health deterioration [Unknown]
  - Disorientation [Unknown]
  - Product use issue [Unknown]

NARRATIVE: CASE EVENT DATE: 20150217
